FAERS Safety Report 11266587 (Version 1)
Quarter: 2015Q3

REPORT INFORMATION
  Report Type: Spontaneous
  Country: US (occurrence: US)
  Receive Date: 20150713
  Receipt Date: 20150713
  Transmission Date: 20151125
  Serious: No
  Sender: FDA-Public Use
  Company Number: US-PFIZER INC-2015227195

PATIENT
  Age: 64 Year
  Sex: Female

DRUGS (2)
  1. METOTREXATE [Concomitant]
     Active Substance: METHOTREXATE SODIUM
     Indication: PAIN
     Dosage: 5 TABLETS EVERY WEDNESDAY
  2. IBUPROFEN. [Suspect]
     Active Substance: IBUPROFEN
     Indication: PAIN
     Dosage: 800 MG, AS NEEDED, MAYBE TWICE A DAY. MAYBE EVERY 4-8 HRS. ONCE IN MORNING OR AT NIGHT

REACTIONS (1)
  - Abdominal discomfort [Unknown]
